FAERS Safety Report 16417455 (Version 1)
Quarter: 2019Q2

REPORT INFORMATION
  Report Type: Spontaneous
  Country: AU (occurrence: AU)
  Receive Date: 20190611
  Receipt Date: 20190611
  Transmission Date: 20190711
  Serious: Yes (Hospitalization, Other)
  Sender: FDA-Public Use
  Company Number: AU-MYLANLABS-2019M1054210

PATIENT
  Age: 64 Year
  Sex: Female

DRUGS (2)
  1. NOTEN [Suspect]
     Active Substance: ATENOLOL
     Indication: HYPERTENSION
     Dosage: UNK
  2. INDAPAMIDE. [Suspect]
     Active Substance: INDAPAMIDE
     Indication: HYPERTENSION
     Dosage: UNK

REACTIONS (13)
  - Productive cough [Unknown]
  - Eczema [Unknown]
  - Hypotension [Unknown]
  - Constipation [Unknown]
  - Pulmonary oedema [Unknown]
  - Ear pruritus [Unknown]
  - Cough [Unknown]
  - Oropharyngeal pain [Unknown]
  - Pruritus [Unknown]
  - Hip deformity [Unknown]
  - Tonsillar hypertrophy [Unknown]
  - Discharge [Unknown]
  - Feeling hot [Unknown]
